FAERS Safety Report 15487268 (Version 1)
Quarter: 2018Q4

REPORT INFORMATION
  Report Type: Spontaneous
  Country: US (occurrence: US)
  Receive Date: 20181011
  Receipt Date: 20181011
  Transmission Date: 20190205
  Serious: No
  Sender: FDA-Public Use
  Company Number: US-GLAXOSMITHKLINE-US2018181531

PATIENT
  Age: 49 Year
  Sex: Female
  Weight: 114 kg

DRUGS (1)
  1. EQUATE NICOTINE [Suspect]
     Active Substance: NICOTINE
     Indication: PRODUCT USED FOR UNKNOWN INDICATION
     Dosage: 21 MG, UNK
     Dates: start: 20181003, end: 20181003

REACTIONS (2)
  - Application site pruritus [Unknown]
  - Application site erythema [Unknown]

NARRATIVE: CASE EVENT DATE: 20181003
